FAERS Safety Report 24117668 (Version 1)
Quarter: 2024Q3

REPORT INFORMATION
  Report Type: Spontaneous
  Country: PL (occurrence: PL)
  Receive Date: 20240722
  Receipt Date: 20240722
  Transmission Date: 20241017
  Serious: Yes (Other)
  Sender: LEO PHARM
  Company Number: PL-LEO Pharma-372089

PATIENT
  Age: 2 Year
  Sex: Male

DRUGS (1)
  1. PROTOPIC [Suspect]
     Active Substance: TACROLIMUS
     Indication: Dermatitis atopic
     Dosage: APPLICATION: TO THE SKIN OF THE LEGS (APPROXIMATELY ? OF THE LEG SURFACE) 1X DAILY, DUE TO ATOPIC LE
     Route: 003
     Dates: start: 202302, end: 202303

REACTIONS (2)
  - Product use issue [Unknown]
  - Burkitt^s lymphoma [Unknown]

NARRATIVE: CASE EVENT DATE: 20230401
